FAERS Safety Report 6354931-6 (Version None)
Quarter: 2009Q3

REPORT INFORMATION
  Report Type: 
  Country: None (occurrence: None)
  Receive Date: 20090914
  Receipt Date: 20090903
  Transmission Date: 20100115
  Serious: Yes (Hospitalization)
  Sender: FDA-Public Use
  Company Number: GB-AVENTIS-200919951GDDC

PATIENT
  Age: 24 Year
  Sex: Female

DRUGS (4)
  1. DESMOPRESSIN ACETATE [Suspect]
     Route: 045
     Dates: start: 19980507
  2. SOMATROPIN [Suspect]
     Indication: HYPOPITUITARISM
     Route: 058
     Dates: start: 20060913
  3. HYDROCORTISONE [Suspect]
     Route: 048
     Dates: start: 19980507
  4. LEVOTHYROXINE SODIUM [Suspect]
     Dates: start: 19980507

REACTIONS (2)
  - BLOOD POTASSIUM DECREASED [None]
  - BLOOD SODIUM DECREASED [None]
